FAERS Safety Report 5498964-0 (Version None)
Quarter: 2007Q4

REPORT INFORMATION
  Report Type: 
  Country: None (occurrence: None)
  Receive Date: 20071026
  Receipt Date: 20070530
  Transmission Date: 20080405
  Serious: No
  Sender: FDA-Public Use
  Company Number: A0650826A

PATIENT
  Age: 77 Year
  Sex: Female

DRUGS (8)
  1. ADVAIR DISKUS 100/50 [Suspect]
     Indication: CHRONIC OBSTRUCTIVE PULMONARY DISEASE
     Dosage: 1PUFF TWICE PER DAY
     Route: 055
     Dates: start: 20070506
  2. SPIRIVA [Concomitant]
  3. COMBIVENT [Concomitant]
  4. ENALAPRIL MALEATE [Concomitant]
  5. CHLOROCHIN [Concomitant]
  6. HYDROCHLOROTHIAZIDE [Concomitant]
  7. VERAPAMIL [Concomitant]
  8. VITAMIN [Concomitant]

REACTIONS (6)
  - DYSPNOEA [None]
  - HYPERSENSITIVITY [None]
  - PHARYNGEAL OEDEMA [None]
  - PHARYNGOLARYNGEAL PAIN [None]
  - SWOLLEN TONGUE [None]
  - THROAT TIGHTNESS [None]
